FAERS Safety Report 7250863-X (Version None)
Quarter: 2011Q1

REPORT INFORMATION
  Report Type: 
  Country: None (occurrence: None)
  Receive Date: 20110128
  Receipt Date: 20110124
  Transmission Date: 20110831
  Serious: Yes (Hospitalization)
  Sender: FDA-Public Use
  Company Number: A0749279A

PATIENT
  Age: 54 Year
  Sex: Male

DRUGS (5)
  1. AVANDIA [Suspect]
     Indication: TYPE 2 DIABETES MELLITUS
     Route: 048
     Dates: start: 20050825, end: 20070415
  2. METFORMIN [Concomitant]
  3. LESCOL [Concomitant]
  4. AVANDAMET [Suspect]
     Indication: TYPE 2 DIABETES MELLITUS
     Dosage: 500MG PER DAY
     Route: 048
     Dates: start: 20050825, end: 20051201
  5. ASPIRIN [Concomitant]

REACTIONS (6)
  - HYPERTENSION [None]
  - LIFE EXPECTANCY SHORTENED [None]
  - QUALITY OF LIFE DECREASED [None]
  - HEART INJURY [None]
  - MYOCARDIAL INFARCTION [None]
  - CORONARY ARTERY DISEASE [None]
